FAERS Safety Report 23105120 (Version 1)
Quarter: 2023Q4

REPORT INFORMATION
  Report Type: Spontaneous
  Country: CN (occurrence: CN)
  Receive Date: 20231025
  Receipt Date: 20231025
  Transmission Date: 20240109
  Serious: Yes (Life-Threatening, Hospitalization, Other)
  Sender: FDA-Public Use
  Company Number: CN-MYLANLABS-2023M1112993

PATIENT
  Age: 54 Year
  Sex: Female
  Weight: 68 kg

DRUGS (9)
  1. AMLODIPINE [Suspect]
     Active Substance: AMLODIPINE BESYLATE
     Indication: Hypertension
     Dosage: 5 MILLIGRAM, QD
     Route: 065
  2. PROPOFOL [Suspect]
     Active Substance: PROPOFOL
     Indication: Induction of anaesthesia
     Dosage: 2 MILLIGRAM/KILOGRAM
     Route: 065
  3. PROPOFOL [Suspect]
     Active Substance: PROPOFOL
     Indication: Induction of anaesthesia
     Dosage: 4-6 MG/KG/H
     Route: 042
  4. SUFENTANIL [Suspect]
     Active Substance: SUFENTANIL
     Indication: Induction of anaesthesia
     Dosage: 1.5 MICROGRAM/KILOGRAM
     Route: 065
  5. VECURONIUM [Suspect]
     Active Substance: VECURONIUM BROMIDE
     Indication: Induction of anaesthesia
     Dosage: 0.6 MILLIGRAM/KILOGRAM
     Route: 065
  6. REMIFENTANIL [Suspect]
     Active Substance: REMIFENTANIL
     Indication: Induction of anaesthesia
     Dosage: 0.1-0.2 UG/KG/MIN
     Route: 065
  7. REMIFENTANIL [Suspect]
     Active Substance: REMIFENTANIL
     Dosage: 0.15 MICROGRAM/KILOGRAM, QMINUTE (0.15 UG/KG/MIN)
     Route: 065
  8. BISOPROLOL FUMARATE [Concomitant]
     Active Substance: BISOPROLOL FUMARATE
     Indication: Hypertension
     Dosage: 5 MILLIGRAM, QD
     Route: 065
  9. ATROPINE [Concomitant]
     Active Substance: ATROPINE
     Indication: Bradycardia
     Dosage: 0.5 MILLIGRAM (INFUSION)
     Route: 065

REACTIONS (3)
  - Hypoxia [Recovered/Resolved]
  - Bradycardia [Recovering/Resolving]
  - Blood pressure fluctuation [Recovering/Resolving]
